FAERS Safety Report 25645230 (Version 1)
Quarter: 2025Q3

REPORT INFORMATION
  Report Type: Spontaneous
  Country: PE (occurrence: PE)
  Receive Date: 20250805
  Receipt Date: 20250805
  Transmission Date: 20251020
  Serious: Yes (Other)
  Sender: MYLAN
  Company Number: PE-MYLANLABS-2024M1094900

PATIENT
  Age: 34 Year
  Sex: Female

DRUGS (4)
  1. ZELDOX [Suspect]
     Active Substance: ZIPRASIDONE
     Indication: Schizoaffective disorder
     Dosage: 80 MILLIGRAM, QD (AT NIGHT AT 8.00 PM)
     Dates: start: 202107
  2. ZELDOX [Suspect]
     Active Substance: ZIPRASIDONE
     Dosage: 80 MILLIGRAM, QD (AT NIGHT AT 8.00 PM)
     Route: 048
     Dates: start: 202107
  3. ZELDOX [Suspect]
     Active Substance: ZIPRASIDONE
     Dosage: 80 MILLIGRAM, QD (AT NIGHT AT 8.00 PM)
     Route: 048
     Dates: start: 202107
  4. ZELDOX [Suspect]
     Active Substance: ZIPRASIDONE
     Dosage: 80 MILLIGRAM, QD (AT NIGHT AT 8.00 PM)
     Dates: start: 202107

REACTIONS (3)
  - Drug dependence [Unknown]
  - Insomnia [Unknown]
  - Constipation [Unknown]
